FAERS Safety Report 17318701 (Version 1)
Quarter: 2020Q1

REPORT INFORMATION
  Report Type: Spontaneous
  Country: US (occurrence: US)
  Receive Date: 20200124
  Receipt Date: 20200124
  Transmission Date: 20200409
  Serious: Yes (Hospitalization)
  Sender: FDA-Public Use
  Company Number: US-NOVOPROD-708035

PATIENT
  Age: 59 Year
  Sex: Female

DRUGS (4)
  1. OZEMPIC [Suspect]
     Active Substance: SEMAGLUTIDE
     Indication: PRODUCT USED FOR UNKNOWN INDICATION
     Dosage: UNK
     Route: 058
     Dates: start: 2018, end: 2018
  2. OZEMPIC [Suspect]
     Active Substance: SEMAGLUTIDE
     Dosage: 1 MG
     Route: 058
     Dates: start: 2018, end: 2019
  3. OZEMPIC [Suspect]
     Active Substance: SEMAGLUTIDE
     Dosage: DIALING HALF THE DOSE (0.5MG) ON 1MG PEN TAKING TWICE A WEEK
     Route: 058
     Dates: start: 201907, end: 202001
  4. OZEMPIC [Suspect]
     Active Substance: SEMAGLUTIDE
     Dosage: DIALING HALF THE DOSE (0.5MG) ON 1MG PEN TAKING TWICE A WEEK
     Route: 058
     Dates: start: 202001

REACTIONS (8)
  - Vomiting [Recovered/Resolved]
  - Nausea [Not Recovered/Not Resolved]
  - Vertigo [Recovered/Resolved]
  - Dehydration [Recovered/Resolved]
  - Cerebrovascular accident [Unknown]
  - Influenza [Recovered/Resolved]
  - Off label use [Not Recovered/Not Resolved]
  - Blood glucose increased [Recovered/Resolved]

NARRATIVE: CASE EVENT DATE: 2018
